FAERS Safety Report 15776715 (Version 6)
Quarter: 2019Q3

REPORT INFORMATION
  Report Type: Spontaneous
  Country: US (occurrence: US)
  Receive Date: 20181231
  Receipt Date: 20190822
  Transmission Date: 20191004
  Serious: No
  Sender: FDA-Public Use
  Company Number: US-PFIZER INC-2018536065

PATIENT
  Age: 61 Year
  Sex: Female

DRUGS (1)
  1. XELJANZ XR [Suspect]
     Active Substance: TOFACITINIB CITRATE
     Dosage: 11 MG, UNK
     Dates: start: 20181113

REACTIONS (10)
  - Cough [Not Recovered/Not Resolved]
  - Foot deformity [Unknown]
  - Peripheral swelling [Unknown]
  - Therapeutic product effect delayed [Unknown]
  - Dry mouth [Unknown]
  - Nasal dryness [Unknown]
  - Dry skin [Unknown]
  - Intentional product misuse [Unknown]
  - Blood pressure diastolic increased [Unknown]
  - Arthralgia [Recovering/Resolving]
